FAERS Safety Report 9530869 (Version 1)
Quarter: 2013Q2

REPORT INFORMATION
  Report Type: Spontaneous
  Country: US (occurrence: None)
  Receive Date: 20130416
  Receipt Date: 20130416
  Transmission Date: 20140414
  Serious: Yes (Hospitalization)
  Sender: FDA-Public Use
  Company Number: 2012034280

PATIENT
  Age: 57 Year
  Sex: Male
  Weight: 113.4 kg

DRUGS (21)
  1. HIZENTRA (IMMUNOGLOBULIN HUMAN NORMAL) [Suspect]
     Indication: HYPOGAMMAGLOBULINAEMIA
     Dosage: 21 G 1X/WEEK, 1 GM 5 ML VIAL-5-7 SITES OVER 1-3 HOURS SUBCUTANEOUS
     Dates: start: 20121213, end: 20121213
  2. HIZENTRA (IMMUNOGLOBULIN HUMAN NORMAL) [Suspect]
     Indication: CHRONIC SINUSITIS
     Dosage: 21 G 1X/WEEK, 1 GM 5 ML VIAL-5-7 SITES OVER 1-3 HOURS SUBCUTANEOUS
     Dates: start: 20121213, end: 20121213
  3. HIZENTRA (IMMUNOGLOBULIN HUMAN NORMAL) [Suspect]
     Indication: PNEUMONIA
     Dosage: 21 G 1X/WEEK, 1 GM 5 ML VIAL-5-7 SITES OVER 1-3 HOURS SUBCUTANEOUS
     Dates: start: 20121213, end: 20121213
  4. BANOPHEN (DIPHENHYDRAMINE HYDROCHLORIDE) [Concomitant]
  5. EPI-PEN (EPINEPHRINE) [Concomitant]
  6. LMX (LIDOCAINE) [Concomitant]
  7. PREDNISONE [Concomitant]
  8. HUMALOG (INSULIN LISPRO) [Concomitant]
  9. XANAX (ALPRAZOLAM) [Concomitant]
  10. LASIX (FUROSEMIDE) [Concomitant]
  11. CARDURA (DOXAZOSIN) [Concomitant]
  12. FLUTICASONE [Concomitant]
  13. NEXIUM (ESOMEPRAZOLE MAGNESIUM) [Concomitant]
  14. ASPIRIN (ACETYLSALICYLIC ACID) [Concomitant]
  15. CRESTOR (ROSUVASTATIN) [Concomitant]
  16. TRAZODONE [Concomitant]
  17. TYLENOL (PARACETAMOL) [Concomitant]
  18. COMBIVENT [Concomitant]
  19. BENADRYL (DIPHENHYDRAMINE HYDROCHLORIDE) [Concomitant]
  20. CARDIZEM (DILTIAZEM) [Concomitant]
  21. ACETAMINOPHEN\HYDROCODONE BITARTRATE [Concomitant]

REACTIONS (2)
  - Abdominal pain [None]
  - Rash [None]
